FAERS Safety Report 23924796 (Version 1)
Quarter: 2024Q2

REPORT INFORMATION
  Report Type: Spontaneous
  Country: FI (occurrence: FI)
  Receive Date: 20240531
  Receipt Date: 20240531
  Transmission Date: 20240716
  Serious: Yes (Other)
  Sender: FDA-Public Use
  Company Number: FI-Merck Healthcare KGaA-2024028402

PATIENT
  Age: 56 Year
  Sex: Male

DRUGS (1)
  1. MAVENCLAD [Suspect]
     Active Substance: CLADRIBINE
     Indication: Multiple sclerosis
     Dosage: FIRST COURSE.
     Dates: start: 202207, end: 202208

REACTIONS (2)
  - Melanocytic naevus [Unknown]
  - Lipoma [Unknown]

NARRATIVE: CASE EVENT DATE: 20220701
